FAERS Safety Report 9524310 (Version 1)
Quarter: 2013Q3

REPORT INFORMATION
  Report Type: Spontaneous
  Country: US (occurrence: None)
  Receive Date: 20130912
  Receipt Date: 20130912
  Transmission Date: 20140515
  Serious: No
  Sender: FDA-Public Use
  Company Number: None

PATIENT
  Age: 70 None
  Sex: Female

DRUGS (2)
  1. ALENDRONATE SODIUM [Suspect]
     Indication: OSTEOPOROSIS
     Route: 048
     Dates: start: 201205, end: 20130810
  2. IBUPROFEN [Concomitant]

REACTIONS (8)
  - Diarrhoea [None]
  - Dyspepsia [None]
  - Flatulence [None]
  - Bone pain [None]
  - Arthralgia [None]
  - Myalgia [None]
  - Nausea [None]
  - Anosmia [None]
